FAERS Safety Report 8601094-X (Version None)
Quarter: 2012Q3

REPORT INFORMATION
  Report Type: 
  Country: None (occurrence: None)
  Receive Date: 20120817
  Receipt Date: 20120810
  Transmission Date: 20120928
  Serious: Yes (Hospitalization)
  Sender: FDA-Public Use
  Company Number: PHHY2012US069435

PATIENT
  Age: 57 Year
  Sex: Male

DRUGS (4)
  1. FLOXURIDINE [Suspect]
     Dosage: 150 MG/KG, UNK
  2. DOCETAXEL [Suspect]
     Route: 042
  3. LEUCOVORIN CALCIUM [Suspect]
     Dosage: 500 MG/M2, UNK
  4. OXALIPLATIN [Suspect]
     Dosage: 85 MG/M2, UNK
     Route: 042

REACTIONS (17)
  - VOMITING [None]
  - BODY TEMPERATURE DECREASED [None]
  - HYPERPHOSPHATAEMIA [None]
  - ARRHYTHMIA [None]
  - HYPOTENSION [None]
  - RESPIRATORY RATE INCREASED [None]
  - TUMOUR LYSIS SYNDROME [None]
  - TACHYCARDIA [None]
  - ATRIAL FIBRILLATION [None]
  - OLIGURIA [None]
  - MUSCULAR WEAKNESS [None]
  - BUNDLE BRANCH BLOCK LEFT [None]
  - HYPERKALAEMIA [None]
  - RENAL FAILURE ACUTE [None]
  - NAUSEA [None]
  - HYPERURICAEMIA [None]
  - HYPOCALCAEMIA [None]
